FAERS Safety Report 20175832 (Version 1)
Quarter: 2021Q4

REPORT INFORMATION
  Report Type: Spontaneous
  Country: US (occurrence: None)
  Receive Date: 20211212
  Receipt Date: 20211212
  Transmission Date: 20220303
  Serious: Yes (Hospitalization)
  Sender: FDA-Public Use
  Company Number: None

PATIENT
  Age: 63 Year
  Sex: Male
  Weight: 07 kg

DRUGS (1)
  1. TRAMADOL HYDROCHLORIDE [Suspect]
     Active Substance: TRAMADOL HYDROCHLORIDE
     Indication: Pain
     Dosage: FREQUENCY : AS NEEDED;?
     Route: 048
     Dates: start: 20211101, end: 20211115

REACTIONS (5)
  - Hypokalaemia [None]
  - Hypoglycaemia [None]
  - Agitation [None]
  - Confusional state [None]
  - Serotonin syndrome [None]

NARRATIVE: CASE EVENT DATE: 20211115
